FAERS Safety Report 4808087-9 (Version None)
Quarter: 2005Q4

REPORT INFORMATION
  Report Type: 
  Country: None (occurrence: None)
  Receive Date: 20051024
  Receipt Date: 20051012
  Transmission Date: 20060501
  Serious: Yes (Death, Hospitalization)
  Sender: FDA-Public Use
  Company Number: IT-MERCK-0510ITA00024

PATIENT
  Age: 16 Year
  Sex: Female

DRUGS (2)
  1. CANCIDAS [Suspect]
     Indication: CANDIDIASIS
     Route: 041
     Dates: start: 20040101, end: 20040101
  2. CANCIDAS [Suspect]
     Route: 041
     Dates: start: 20040101, end: 20040201

REACTIONS (4)
  - PLASMA CELLS DECREASED [None]
  - PSEUDOMONAS INFECTION [None]
  - SEPTIC SHOCK [None]
  - ZYGOMYCOSIS [None]
